FAERS Safety Report 7487442-5 (Version None)
Quarter: 2011Q2

REPORT INFORMATION
  Report Type: 
  Country: None (occurrence: None)
  Receive Date: 20110518
  Receipt Date: 20110503
  Transmission Date: 20111010
  Serious: Yes (Other)
  Sender: FDA-Public Use
  Company Number: DE-JNJFOC-20110502280

PATIENT
  Age: 31 Year
  Sex: Female

DRUGS (4)
  1. INFLIXIMAB, RECOMBINANT [Suspect]
     Indication: ANASTOMOTIC ULCER
     Route: 042
  2. INFLIXIMAB, RECOMBINANT [Suspect]
     Route: 042
  3. INFLIXIMAB, RECOMBINANT [Suspect]
     Route: 042
  4. INFLIXIMAB, RECOMBINANT [Suspect]
     Indication: ILEAL ULCER
     Route: 042

REACTIONS (1)
  - ANASTOMOTIC COMPLICATION [None]
